FAERS Safety Report 18895049 (Version 1)
Quarter: 2021Q1

REPORT INFORMATION
  Report Type: Spontaneous
  Country: DE (occurrence: DE)
  Receive Date: 20210216
  Receipt Date: 20210216
  Transmission Date: 20210420
  Serious: Yes (Other)
  Sender: FDA-Public Use
  Company Number: DE-AUROBINDO-AUR-APL-2021-005644

PATIENT
  Sex: Female

DRUGS (6)
  1. DULOXETINE. [Suspect]
     Active Substance: DULOXETINE
     Indication: PARKINSON^S DISEASE
     Dosage: 60 MILLIGRAM, ONCE A DAY
     Route: 065
  2. LEVODOPA [Suspect]
     Active Substance: LEVODOPA
     Indication: PARKINSON^S DISEASE
     Dosage: 250 MILLIGRAM, DAILY
     Route: 065
  3. CLARIUM [PIRIBEDIL] [Suspect]
     Active Substance: PIRIBEDIL
     Indication: PARKINSON^S DISEASE
     Dosage: 200 MILLIGRAM, ONCE A DAY (2?1?1)
     Route: 065
  4. CLARIUM [PIRIBEDIL] [Suspect]
     Active Substance: PIRIBEDIL
     Dosage: 250 MILLIGRAM, ONCE A DAY (2?1?2)
     Route: 065
  5. DULOXETINE. [Suspect]
     Active Substance: DULOXETINE
     Dosage: 30 MILLIGRAM, ONCE A DAY
     Route: 065
  6. LEVODOPA [Suspect]
     Active Substance: LEVODOPA
     Dosage: UNK (100/25 MG, DOSED UP TO 3X1 TO ACHIEVE A QUICK THERAPEUTIC EFFECT)
     Route: 065

REACTIONS (4)
  - Fatigue [Recovering/Resolving]
  - Hallucination [Unknown]
  - Nausea [Unknown]
  - Depression [Unknown]
